FAERS Safety Report 17223662 (Version 1)
Quarter: 2020Q1

REPORT INFORMATION
  Report Type: Spontaneous
  Country: US (occurrence: US)
  Receive Date: 20200102
  Receipt Date: 20200102
  Transmission Date: 20200409
  Serious: Yes (Other)
  Sender: FDA-Public Use
  Company Number: US-ABBVIE-19K-163-3215136-00

PATIENT
  Sex: Female

DRUGS (3)
  1. CRESTOR [Concomitant]
     Active Substance: ROSUVASTATIN CALCIUM
     Indication: PRODUCT USED FOR UNKNOWN INDICATION
  2. SYNTHROID [Suspect]
     Active Substance: LEVOTHYROXINE SODIUM
     Indication: PRODUCT USED FOR UNKNOWN INDICATION
     Route: 048
     Dates: start: 2014
  3. LIPITOR [Concomitant]
     Active Substance: ATORVASTATIN CALCIUM
     Indication: PRODUCT USED FOR UNKNOWN INDICATION

REACTIONS (12)
  - Retinal detachment [Unknown]
  - Hot flush [Recovering/Resolving]
  - Migraine [Not Recovered/Not Resolved]
  - Osteopenia [Unknown]
  - Vascular dementia [Unknown]
  - CSF shunt irrigation [Not Recovered/Not Resolved]
  - Cataract [Unknown]
  - Arteriosclerosis [Unknown]
  - Mental status changes [Not Recovered/Not Resolved]
  - Diabetes mellitus [Unknown]
  - Thyroidectomy [Unknown]
  - Neuropathy peripheral [Unknown]

NARRATIVE: CASE EVENT DATE: 2014
